FAERS Safety Report 24683980 (Version 1)
Quarter: 2024Q4

REPORT INFORMATION
  Report Type: Spontaneous
  Country: HU (occurrence: HU)
  Receive Date: 20241202
  Receipt Date: 20241202
  Transmission Date: 20250115
  Serious: Yes (Other)
  Sender: ROCHE
  Company Number: HU-ROCHE-10000141227

PATIENT
  Age: 62 Year
  Sex: Female

DRUGS (6)
  1. ALECTINIB [Suspect]
     Active Substance: ALECTINIB
     Indication: Adenocarcinoma metastatic
     Route: 065
     Dates: start: 20200903
  2. DIOVAN [Concomitant]
     Active Substance: VALSARTAN
     Indication: Hypertension
  3. NEBIVOLOL [Concomitant]
     Active Substance: NEBIVOLOL
     Indication: Hypertension
  4. LORLATINIB [Concomitant]
     Active Substance: LORLATINIB
  5. LORLATINIB [Concomitant]
     Active Substance: LORLATINIB
     Dates: start: 20220902
  6. LORLATINIB [Concomitant]
     Active Substance: LORLATINIB
     Dates: start: 202207

REACTIONS (5)
  - Abdominal pain lower [Unknown]
  - Weight increased [Unknown]
  - Disease progression [Unknown]
  - Blood alkaline phosphatase increased [Unknown]
  - Blood cholesterol increased [Unknown]
